FAERS Safety Report 12630931 (Version 2)
Quarter: 2016Q3

REPORT INFORMATION
  Report Type: Spontaneous
  Country: US (occurrence: US)
  Receive Date: 20160808
  Receipt Date: 20160808
  Transmission Date: 20161109
  Serious: No
  Sender: FDA-Public Use
  Company Number: US-BEH-2014046065

PATIENT
  Sex: Female
  Weight: 52 kg

DRUGS (22)
  1. HIZENTRA [Suspect]
     Active Substance: HUMAN IMMUNOGLOBULIN G
     Indication: IMMUNODEFICIENCY COMMON VARIABLE
     Dosage: DRUG START DATE OCT,2014 AND DRUG STOP DATE DEC,2014.
     Route: 058
  2. AMBIEN [Concomitant]
     Active Substance: ZOLPIDEM TARTRATE
  3. VALIUM [Concomitant]
     Active Substance: DIAZEPAM
  4. DURAGESIC [Concomitant]
     Active Substance: FENTANYL
  5. PROBIOTIC [Concomitant]
     Active Substance: PROBIOTICS NOS
  6. ACYCLOVIR. [Concomitant]
     Active Substance: ACYCLOVIR
  7. CHOLESTYRAMINE. [Concomitant]
     Active Substance: CHOLESTYRAMINE
  8. CLONIDINE HCL [Concomitant]
     Active Substance: CLONIDINE HYDROCHLORIDE
  9. MYCELEX [Concomitant]
     Active Substance: CLOTRIMAZOLE
  10. LIDOCAINE. [Concomitant]
     Active Substance: LIDOCAINE
  11. MORPHINE [Concomitant]
     Active Substance: MORPHINE
  12. ARMOUR THYROID [Concomitant]
     Active Substance: THYROID, PORCINE
  13. PENTASA [Concomitant]
     Active Substance: MESALAMINE
  14. DIPHENHYDRAMINE. [Concomitant]
     Active Substance: DIPHENHYDRAMINE
  15. EPIPEN [Concomitant]
     Active Substance: EPINEPHRINE
  16. NYSTATIN. [Concomitant]
     Active Substance: NYSTATIN
  17. MELATONIN [Concomitant]
     Active Substance: MELATONIN
  18. ACETAMINOPHEN. [Concomitant]
     Active Substance: ACETAMINOPHEN
  19. SILIASE LIPO DIGESTIVE ENZYMES [Concomitant]
  20. ZOFRAN [Concomitant]
     Active Substance: ONDANSETRON HYDROCHLORIDE
  21. ZOMIG [Concomitant]
     Active Substance: ZOLMITRIPTAN
  22. CELEXA [Concomitant]
     Active Substance: CITALOPRAM HYDROBROMIDE

REACTIONS (4)
  - Influenza like illness [Unknown]
  - Pain in extremity [Unknown]
  - Nasopharyngitis [Unknown]
  - Oropharyngeal pain [Unknown]
